FAERS Safety Report 21770385 (Version 1)
Quarter: 2022Q4

REPORT INFORMATION
  Report Type: Spontaneous
  Country: US (occurrence: US)
  Receive Date: 20221223
  Receipt Date: 20221223
  Transmission Date: 20230113
  Serious: Yes (Other)
  Sender: FDA-Public Use
  Company Number: US-SA-SAC20221222000888

PATIENT
  Sex: Female
  Weight: 106.58 kg

DRUGS (11)
  1. DUPIXENT [Suspect]
     Active Substance: DUPILUMAB
     Indication: Dermatitis atopic
     Dosage: 2 ML, QOW
     Route: 058
     Dates: start: 20201214
  2. OZEMPIC [Concomitant]
     Active Substance: SEMAGLUTIDE
  3. EUCRISA [Concomitant]
     Active Substance: CRISABOROLE
  4. METFORMIN HYDROCHLORIDE [Concomitant]
     Active Substance: METFORMIN HYDROCHLORIDE
  5. BETAMETHASONE [Concomitant]
     Active Substance: BETAMETHASONE
  6. TYLENOL [Concomitant]
     Active Substance: ACETAMINOPHEN
  7. MODERNA COVID-19 VACCINE [Concomitant]
     Active Substance: ELASOMERAN
  8. KETOCONAZOLE [Concomitant]
     Active Substance: KETOCONAZOLE
  9. CLARITHROMYCIN [Concomitant]
     Active Substance: CLARITHROMYCIN
  10. VITAMIN D2 [Concomitant]
     Active Substance: ERGOCALCIFEROL
  11. VITAMINS NOS [Concomitant]
     Active Substance: VITAMINS

REACTIONS (4)
  - Type 2 diabetes mellitus [Unknown]
  - Tremor [Unknown]
  - Asthma [Unknown]
  - Inappropriate schedule of product administration [Unknown]
